FAERS Safety Report 24623148 (Version 1)
Quarter: 2024Q4

REPORT INFORMATION
  Report Type: Spontaneous
  Country: US (occurrence: US)
  Receive Date: 20241115
  Receipt Date: 20241115
  Transmission Date: 20250115
  Serious: No
  Sender: ALEXION PHARMACEUTICALS
  Company Number: US-AstraZeneca-CH-00720952A

PATIENT
  Age: 75 Year

DRUGS (4)
  1. TAGRISSO [Suspect]
     Active Substance: OSIMERTINIB
     Dosage: UNK
     Route: 065
  2. TAGRISSO [Suspect]
     Active Substance: OSIMERTINIB
     Dosage: UNK
  3. TAGRISSO [Suspect]
     Active Substance: OSIMERTINIB
     Dosage: UNK
     Route: 065
  4. TAGRISSO [Suspect]
     Active Substance: OSIMERTINIB
     Dosage: UNK

REACTIONS (13)
  - Diarrhoea [Recovering/Resolving]
  - Trichorrhexis [Recovering/Resolving]
  - Dyspepsia [Unknown]
  - Abdominal distension [Unknown]
  - Abdominal discomfort [Recovering/Resolving]
  - Stomatitis [Recovering/Resolving]
  - Onychoclasis [Recovering/Resolving]
  - Blood calcium decreased [Recovering/Resolving]
  - Blood zinc decreased [Recovering/Resolving]
  - Muscle spasms [Recovering/Resolving]
  - Restless legs syndrome [Recovered/Resolved]
  - Wrong technique in product usage process [Recovered/Resolved]
  - Intentional dose omission [Unknown]
